APPROVED DRUG PRODUCT: POSACONAZOLE
Active Ingredient: POSACONAZOLE
Strength: 100MG
Dosage Form/Route: TABLET, DELAYED RELEASE;ORAL
Application: A207355 | Product #001
Applicant: ACTAVIS LABORATORIES FL INC
Approved: Nov 30, 2022 | RLD: No | RS: No | Type: DISCN